FAERS Safety Report 19916817 (Version 1)
Quarter: 2021Q4

REPORT INFORMATION
  Report Type: Spontaneous
  Country: US (occurrence: US)
  Receive Date: 20211004
  Receipt Date: 20211004
  Transmission Date: 20220303
  Serious: Yes (Other)
  Sender: FDA-Public Use
  Company Number: None

PATIENT
  Age: 31 Year
  Sex: Female
  Weight: 45 kg

DRUGS (2)
  1. ESTRADIOL TRANSDERMAL SYSTEM [Suspect]
     Active Substance: ESTRADIOL
     Indication: Premature menopause
     Dosage: OTHER FREQUENCY:WEEKLY;
     Route: 062
     Dates: start: 20201203, end: 20201223
  2. Mylan patch [Concomitant]
     Dates: start: 20201030, end: 20201223

REACTIONS (3)
  - Application site hypersensitivity [None]
  - Application site pruritus [None]
  - Application site pain [None]

NARRATIVE: CASE EVENT DATE: 20210109
